FAERS Safety Report 8131338-2 (Version None)
Quarter: 2012Q1

REPORT INFORMATION
  Report Type: 
  Country: None (occurrence: None)
  Receive Date: 20120213
  Receipt Date: 20120206
  Transmission Date: 20120608
  Serious: Yes (Other)
  Sender: FDA-Public Use
  Company Number: GB-BRISTOL-MYERS SQUIBB COMPANY-15747041

PATIENT
  Age: 43 Year
  Sex: Female
  Weight: 82 kg

DRUGS (1)
  1. CETUXIMAB [Suspect]
     Indication: HEAD AND NECK CANCER
     Dosage: INITIAL:400 MG/M2.RECENT DOSE 04MAY11,11MAY11(492.5 MG).NO OF INF-2. CETUXIMAB 2MG/ML,250MG/M2.
     Route: 042
     Dates: start: 20110427

REACTIONS (1)
  - THROMBOSIS [None]
